FAERS Safety Report 25009366 (Version 3)
Quarter: 2025Q3

REPORT INFORMATION
  Report Type: Spontaneous
  Country: US (occurrence: US)
  Receive Date: 20250225
  Receipt Date: 20250812
  Transmission Date: 20251021
  Serious: Yes (Death, Other)
  Sender: PFIZER
  Company Number: US-PFIZER INC-202500041507

PATIENT
  Age: 54 Year
  Sex: Male

DRUGS (1)
  1. VANCOMYCIN HYDROCHLORIDE [Suspect]
     Active Substance: VANCOMYCIN HYDROCHLORIDE
     Dates: start: 20241207

REACTIONS (1)
  - Anaphylactic reaction [Fatal]

NARRATIVE: CASE EVENT DATE: 20241207
